FAERS Safety Report 10037010 (Version 1)
Quarter: 2014Q1

REPORT INFORMATION
  Report Type: Spontaneous
  Country: US (occurrence: US)
  Receive Date: 20140326
  Receipt Date: 20140326
  Transmission Date: 20141002
  Serious: No
  Sender: FDA-Public Use
  Company Number: US-BIOGENIDEC-2014BI026477

PATIENT
  Age: 53 Year
  Sex: Female

DRUGS (10)
  1. TECFIDERA [Suspect]
     Indication: MULTIPLE SCLEROSIS
     Route: 048
     Dates: start: 20140224
  2. ADDERALL [Concomitant]
  3. ALPRAZOLAM [Concomitant]
  4. CYMBALTA [Concomitant]
  5. IRON SUPPLEMENT [Concomitant]
  6. OMEPRAZOLE [Concomitant]
  7. PROPRANOLOL HCL [Concomitant]
  8. SPIRONOLACTONE [Concomitant]
  9. VITAMIN C [Concomitant]
  10. VITAMIN D-3 [Concomitant]

REACTIONS (6)
  - Tachycardia [Not Recovered/Not Resolved]
  - Intentional drug misuse [Not Recovered/Not Resolved]
  - Fatigue [Not Recovered/Not Resolved]
  - Dyspepsia [Not Recovered/Not Resolved]
  - Flushing [Not Recovered/Not Resolved]
  - Rash pruritic [Not Recovered/Not Resolved]
